FAERS Safety Report 9092468 (Version 3)
Quarter: 2013Q2

REPORT INFORMATION
  Report Type: Report from Study
  Country: US (occurrence: US)
  Receive Date: 20130201
  Receipt Date: 20130429
  Transmission Date: 20140414
  Serious: Yes (Disabling)
  Sender: FDA-Public Use
  Company Number: PHEH2013US002647

PATIENT
  Sex: Female
  Weight: 68.48 kg

DRUGS (11)
  1. GILENYA [Suspect]
     Indication: MULTIPLE SCLEROSIS
     Dosage: 0.5 MG, QD
     Route: 048
     Dates: start: 20121109, end: 20130124
  2. KEPPRA [Concomitant]
     Indication: CONVULSION
     Dosage: 500 MG, BID
     Route: 048
  3. BUSPAR [Concomitant]
     Dosage: 7.5 MG, UNK
     Route: 048
  4. FLEXERIL [Concomitant]
     Indication: MUSCLE SPASMS
     Dosage: 10 MG, UNK
     Route: 048
  5. VICODIN [Concomitant]
     Indication: PAIN
     Dosage: 10/500 TID
     Route: 048
  6. VALIUM [Concomitant]
     Indication: NERVOUSNESS
     Dosage: 5 MG, TID
     Route: 048
  7. LEVOTHYROXINE [Concomitant]
     Indication: THYROID DISORDER
     Dosage: 100 UG, QD (MORNING)
     Route: 048
  8. ZOLOFT [Concomitant]
     Dosage: 150 MG, QD
  9. ZANTAC [Concomitant]
     Dosage: 150 MG, BID
  10. MODAFINIL [Concomitant]
     Dosage: 200 MG, BID
  11. FERROUS SULFATE [Concomitant]
     Dosage: 325 MG, BID

REACTIONS (4)
  - Abasia [Recovering/Resolving]
  - Gait disturbance [Recovering/Resolving]
  - Fall [Recovering/Resolving]
  - Hypoaesthesia [Unknown]
